FAERS Safety Report 7765533-9 (Version None)
Quarter: 2011Q3

REPORT INFORMATION
  Report Type: 
  Country: None (occurrence: None)
  Receive Date: 20110921
  Receipt Date: 20110914
  Transmission Date: 20111222
  Serious: Yes (Hospitalization, Other)
  Sender: FDA-Public Use
  Company Number: US-ABBOTT-11P-163-0853710-00

PATIENT
  Sex: Female

DRUGS (12)
  1. SEROQUEL [Concomitant]
     Indication: BIPOLAR DISORDER
     Dates: start: 20050101
  2. HUMIRA [Suspect]
     Indication: RHEUMATOID ARTHRITIS
     Route: 058
     Dates: start: 20090201, end: 20100301
  3. ANTIDEPRESSANTS [Suspect]
     Indication: BIPOLAR DISORDER
     Dates: end: 20100101
  4. METHOTREXATE [Concomitant]
     Indication: RHEUMATOID ARTHRITIS
  5. HUMIRA [Suspect]
     Indication: PSORIATIC ARTHROPATHY
     Route: 058
     Dates: start: 20071201, end: 20081214
  6. HUMIRA [Suspect]
     Route: 058
     Dates: start: 20110501
  7. WARFARIN SODIUM [Concomitant]
     Indication: FACTOR V DEFICIENCY
     Dosage: DAILY
     Dates: start: 20010101
  8. TEGRETOL [Concomitant]
     Indication: BIPOLAR DISORDER
     Dates: start: 20050101
  9. METHOTREXATE [Concomitant]
     Indication: PSORIATIC ARTHROPATHY
     Dosage: EIGHT 2.5MG TABLETS WEEKLY
  10. MOXIFLOXACIN [Suspect]
     Indication: ALVEOLITIS ALLERGIC
     Dosage: TWO DOSES ONLY
     Route: 042
     Dates: start: 20110501, end: 20110501
  11. TRICOR [Concomitant]
     Indication: BLOOD CHOLESTEROL INCREASED
     Dosage: DAILY
  12. CRESTOR [Concomitant]
     Indication: BLOOD CHOLESTEROL INCREASED
     Dosage: DAILY

REACTIONS (14)
  - ALVEOLITIS ALLERGIC [None]
  - HYPERSENSITIVITY [None]
  - SKIN DISCOLOURATION [None]
  - IMPAIRED HEALING [None]
  - PERTUSSIS [None]
  - DEPRESSION [None]
  - ANXIETY [None]
  - URTICARIA [None]
  - BIPOLAR DISORDER [None]
  - BRONCHITIS [None]
  - PNEUMONIA [None]
  - IMPAIRED WORK ABILITY [None]
  - PROCEDURAL SITE REACTION [None]
  - CHEST PAIN [None]
